FAERS Safety Report 7935639-X (Version None)
Quarter: 2011Q4

REPORT INFORMATION
  Report Type: 
  Country: None (occurrence: None)
  Receive Date: 20111123
  Receipt Date: 20111114
  Transmission Date: 20120403
  Serious: Yes (Hospitalization)
  Sender: FDA-Public Use
  Company Number: US-ELI_LILLY_AND_COMPANY-US201111004968

PATIENT
  Age: 73 Year
  Sex: Female

DRUGS (5)
  1. HUMALOG [Suspect]
     Dosage: UNK, UNKNOWN
  2. HUMALOG MIX 75/25 [Suspect]
     Indication: DIABETES MELLITUS
     Dosage: 30 U, EACH MORNING
  3. HUMALOG MIX 75/25 [Suspect]
     Dosage: 9 U, EACH EVENING
  4. HUMALOG MIX 75/25 [Suspect]
     Dosage: 9 U, EACH EVENING
  5. HUMALOG MIX 75/25 [Suspect]
     Dosage: 30 U, EACH MORNING

REACTIONS (6)
  - CONTUSION [None]
  - SURGERY [None]
  - DRUG DISPENSING ERROR [None]
  - UPPER LIMB FRACTURE [None]
  - INJECTION SITE PAIN [None]
  - BLOOD GLUCOSE INCREASED [None]
